FAERS Safety Report 6209592-3 (Version None)
Quarter: 2009Q2

REPORT INFORMATION
  Report Type: 
  Country: None (occurrence: None)
  Receive Date: 20090601
  Receipt Date: 20090528
  Transmission Date: 20091009
  Serious: Yes (Other)
  Sender: FDA-Public Use
  Company Number: CH-BRISTOL-MYERS SQUIBB COMPANY-14639918

PATIENT
  Age: 14 Year
  Sex: Female

DRUGS (2)
  1. ORENCIA [Suspect]
     Indication: MUSCULOSKELETAL PAIN
  2. ANTRA [Concomitant]

REACTIONS (1)
  - TRANSAMINASES INCREASED [None]
